FAERS Safety Report 14941746 (Version 2)
Quarter: 2019Q1

REPORT INFORMATION
  Report Type: Spontaneous
  Country: US (occurrence: US)
  Receive Date: 20180527
  Receipt Date: 20190110
  Transmission Date: 20190417
  Serious: No
  Sender: FDA-Public Use
  Company Number: US-JNJFOC-20180520839

PATIENT
  Sex: Male
  Weight: 83.01 kg

DRUGS (1)
  1. HALDOL [Suspect]
     Active Substance: HALOPERIDOL
     Indication: SCHIZOPHRENIA
     Route: 048
     Dates: end: 2013

REACTIONS (9)
  - Skin tightness [Recovered/Resolved]
  - Hypersomnia [Recovered/Resolved]
  - Hallucination, auditory [Recovered/Resolved]
  - Paranoia [Recovered/Resolved]
  - Gambling [Not Recovered/Not Resolved]
  - Muscle spasms [Unknown]
  - Pruritus [Recovered/Resolved]
  - Stereotypy [Recovered/Resolved]
  - Dyskinesia [Recovered/Resolved]

NARRATIVE: CASE EVENT DATE: 2013
